FAERS Safety Report 6673245-8 (Version None)
Quarter: 2010Q2

REPORT INFORMATION
  Report Type: 
  Country: None (occurrence: None)
  Receive Date: 20100408
  Receipt Date: 20100329
  Transmission Date: 20101027
  Serious: Yes (Other)
  Sender: FDA-Public Use
  Company Number: US-PFIZER INC-2010040738

PATIENT
  Sex: Male
  Weight: 94.331 kg

DRUGS (1)
  1. SUTENT [Suspect]
     Dosage: UNK
     Dates: start: 20100201

REACTIONS (2)
  - HOT FLUSH [None]
  - HYPOGONADISM [None]
